FAERS Safety Report 6564412-2 (Version None)
Quarter: 2010Q1

REPORT INFORMATION
  Report Type: 
  Country: None (occurrence: None)
  Receive Date: 20100201
  Receipt Date: 20100127
  Transmission Date: 20100710
  Serious: Yes (Death)
  Sender: FDA-Public Use
  Company Number: US-BRISTOL-MYERS SQUIBB COMPANY-14757959

PATIENT
  Age: 64 Year
  Sex: Female

DRUGS (1)
  1. IXEMPRA KIT [Suspect]
     Indication: UTERINE CANCER
     Dosage: ALSO ON 27AUG09;17SEP09
     Route: 042
     Dates: start: 20090806

REACTIONS (1)
  - DEATH [None]
